FAERS Safety Report 8933669 (Version 2)
Quarter: 2012Q4

REPORT INFORMATION
  Report Type: 
  Country: ML (occurrence: ML)
  Receive Date: 20121129
  Receipt Date: 20121218
  Transmission Date: 20130627
  Serious: Yes (Death, Hospitalization)
  Sender: FDA-Public Use
  Company Number: PHHY2012ML108778

PATIENT
  Age: 46 Year
  Sex: Male
  Weight: 60 kg

DRUGS (1)
  1. GLIVEC [Suspect]
     Indication: CHRONIC MYELOID LEUKAEMIA
     Dosage: 400 mg, daily
     Route: 048
     Dates: start: 20091207, end: 20121121

REACTIONS (5)
  - General physical condition abnormal [Fatal]
  - Decreased appetite [Fatal]
  - Dehydration [Fatal]
  - Fungal infection [Fatal]
  - Oral candidiasis [Fatal]
